FAERS Safety Report 7932366 (Version 2)
Quarter: 2013Q3

REPORT INFORMATION
  Report Type: Spontaneous
  Country: IN (occurrence: IN)
  Receive Date: 20110505
  Receipt Date: 20130813
  Transmission Date: 20140515
  Serious: Yes (Death)
  Sender: FDA-Public Use
  Company Number: IN-GENZYME-POMP-1001528

PATIENT
  Age: 1 Year
  Sex: Male

DRUGS (1)
  1. MYOZYME [Suspect]
     Indication: GLYCOGEN STORAGE DISEASE TYPE II
     Dosage: 3 VIALS/ INFUSION/ 14 DAYS
     Route: 042
     Dates: start: 20110128, end: 20110412

REACTIONS (1)
  - Cardiac arrest [Fatal]
